FAERS Safety Report 5865229-4 (Version None)
Quarter: 2008Q3

REPORT INFORMATION
  Report Type: 
  Country: None (occurrence: None)
  Receive Date: 20080829
  Receipt Date: 20080826
  Transmission Date: 20090109
  Serious: Yes (Hospitalization)
  Sender: FDA-Public Use
  Company Number: B0534436A

PATIENT
  Age: 58 Year
  Sex: Female

DRUGS (10)
  1. AMOXICILLIN [Suspect]
     Indication: RHINITIS
     Dosage: 1G THREE TIMES PER DAY
     Route: 048
     Dates: start: 20080401
  2. MABTHERA [Suspect]
     Indication: DRUG USE FOR UNKNOWN INDICATION
     Route: 042
     Dates: start: 20070724, end: 20071022
  3. ACETAMINOPHEN [Suspect]
     Indication: DRUG USE FOR UNKNOWN INDICATION
     Route: 048
  4. ZELITREX [Concomitant]
     Indication: DRUG USE FOR UNKNOWN INDICATION
     Route: 065
  5. ESTIMA [Concomitant]
     Indication: DRUG USE FOR UNKNOWN INDICATION
     Route: 065
  6. TARDYFERON [Concomitant]
     Indication: DRUG USE FOR UNKNOWN INDICATION
     Route: 065
  7. SOLUPRED [Concomitant]
     Indication: SINUSITIS
     Route: 065
     Dates: start: 20080201
  8. DESLORATADINE [Concomitant]
     Indication: SINUSITIS
     Route: 065
     Dates: start: 20080201
  9. ACETAMINOPHEN [Concomitant]
     Indication: SINUSITIS
     Route: 065
     Dates: start: 20080201
  10. TANAKAN [Concomitant]
     Indication: SINUSITIS
     Route: 065
     Dates: start: 20080201

REACTIONS (3)
  - AGRANULOCYTOSIS [None]
  - FEBRILE NEUTROPENIA [None]
  - MYELOID MATURATION ARREST [None]
